FAERS Safety Report 18343512 (Version 2)
Quarter: 2021Q4

REPORT INFORMATION
  Report Type: Spontaneous
  Country: US (occurrence: US)
  Receive Date: 20201005
  Receipt Date: 20211213
  Transmission Date: 20220303
  Serious: Yes (Other)
  Sender: FDA-Public Use
  Company Number: US-PFIZER INC-2020381607

PATIENT
  Age: 66 Year
  Sex: Female

DRUGS (2)
  1. SOMAVERT [Suspect]
     Active Substance: PEGVISOMANT
     Dosage: 10 MG
     Dates: start: 20190801
  2. SOMAVERT [Suspect]
     Active Substance: PEGVISOMANT
     Dosage: 20 MG
     Dates: start: 20210420

REACTIONS (2)
  - Diverticulitis [Unknown]
  - Alopecia [Unknown]

NARRATIVE: CASE EVENT DATE: 20200101
